FAERS Safety Report 15256140 (Version 1)
Quarter: 2018Q3

REPORT INFORMATION
  Report Type: Report from Study
  Country: CA (occurrence: CA)
  Receive Date: 20180808
  Receipt Date: 20180808
  Transmission Date: 20181010
  Serious: Yes (Other)
  Sender: FDA-Public Use
  Company Number: CA-JNJFOC-20180604961

PATIENT
  Age: 37 Year
  Sex: Female
  Weight: 73 kg

DRUGS (1)
  1. REMICADE [Suspect]
     Active Substance: INFLIXIMAB
     Indication: CROHN^S DISEASE
     Dosage: STRENGTH = 100 MG (10 MG/KG)
     Route: 042
     Dates: start: 20151009

REACTIONS (6)
  - Drug dose omission [Unknown]
  - Colon dysplasia [Unknown]
  - Product storage error [Unknown]
  - Anal fistula [Not Recovered/Not Resolved]
  - Urinary tract infection [Unknown]
  - Rash [Not Recovered/Not Resolved]

NARRATIVE: CASE EVENT DATE: 201805
